FAERS Safety Report 7206713-0 (Version None)
Quarter: 2011Q1

REPORT INFORMATION
  Report Type: 
  Country: None (occurrence: None)
  Receive Date: 20110103
  Receipt Date: 20101115
  Transmission Date: 20110831
  Serious: No
  Sender: FDA-Public Use
  Company Number: US-JNJFOC-20101106286

PATIENT
  Sex: Male

DRUGS (2)
  1. AN UNKNOWN MEDICATION [Concomitant]
     Indication: SCHIZOAFFECTIVE DISORDER
  2. INVEGA [Suspect]
     Indication: SCHIZOAFFECTIVE DISORDER
     Route: 048

REACTIONS (4)
  - COMPULSIONS [None]
  - NERVOUSNESS [None]
  - HALLUCINATION, AUDITORY [None]
  - BITE [None]
